FAERS Safety Report 18903410 (Version 2)
Quarter: 2021Q1

REPORT INFORMATION
  Report Type: Report from Study
  Country: None (occurrence: CA)
  Receive Date: 20210216
  Receipt Date: 20210222
  Transmission Date: 20210420
  Serious: Yes (Other)
  Sender: FDA-Public Use
  Company Number: CA-ABBVIE-21K-028-3776063-00

PATIENT
  Age: 54 Year
  Sex: Female

DRUGS (1)
  1. HUMIRA [Suspect]
     Active Substance: ADALIMUMAB
     Indication: RHEUMATOID ARTHRITIS
     Route: 058
     Dates: start: 20110302

REACTIONS (3)
  - Drug ineffective [Not Recovered/Not Resolved]
  - Arthrodesis [Unknown]
  - Ankle arthroplasty [Unknown]

NARRATIVE: CASE EVENT DATE: 20200922
